FAERS Safety Report 4411154-5 (Version None)
Quarter: 2004Q2

REPORT INFORMATION
  Report Type: 
  Country: None (occurrence: None)
  Receive Date: 20040630
  Receipt Date: 20040426
  Transmission Date: 20050107
  Serious: No
  Sender: FDA-Public Use
  Company Number: 04P-163-0258717-00

PATIENT
  Age: 84 Year
  Sex: Female
  Weight: 70.3075 kg

DRUGS (9)
  1. HUMIRA [Suspect]
     Indication: RHEUMATOID ARTHRITIS
     Dosage: 40 MG, 1 IN 2 WK, SUBCUTANEOUS
     Route: 058
     Dates: start: 20040201
  2. DILTIAZEM HYDROCHLORIDE [Concomitant]
  3. COUMADIN [Concomitant]
  4. POTASSIUM [Concomitant]
  5. FOLIC ACID [Concomitant]
  6. METHOTREXATE [Concomitant]
  7. FUROSEMIDE [Concomitant]
  8. RISEDRONATE SODUIM [Concomitant]
  9. ICAPS [Concomitant]

REACTIONS (2)
  - ASTHENIA [None]
  - BALANCE DISORDER [None]
